FAERS Safety Report 4530534-0 (Version None)
Quarter: 2005Q1

REPORT INFORMATION
  Report Type: 
  Country: None (occurrence: None)
  Receive Date: 20041216
  Receipt Date: 20041201
  Transmission Date: 20050727
  Serious: Yes (Hospitalization)
  Sender: FDA-Public Use
  Company Number: A02200403558

PATIENT
  Age: 45 Year
  Sex: Female

DRUGS (5)
  1. STILNOX - (ZOLPIDEM) - TABLET - 10 MG [Suspect]
     Dosage: 10 MG OD ORAL
     Route: 048
     Dates: start: 20030104, end: 20030224
  2. POTASSIUM CHLORIDE [Suspect]
     Dosage: ORAL
     Route: 048
     Dates: start: 20030104, end: 20030227
  3. OMEPRAZOLE [Suspect]
     Dosage: 20 MG OD ORAL
     Route: 048
     Dates: start: 20021205, end: 20030224
  4. FORLAX - (MACROGOL) - POWDER - 10 G [Suspect]
     Dosage: 30 G QD ORAL
     Route: 048
     Dates: start: 20030103, end: 20030224
  5. TRIZIVIR [Suspect]
     Indication: HIV INFECTION
     Dosage: 1 DF BID ORAL
     Route: 048
     Dates: start: 20030110, end: 20030218

REACTIONS (4)
  - ANAEMIA MACROCYTIC [None]
  - EOSINOPHIL COUNT INCREASED [None]
  - NEUTROPHIL PERCENTAGE DECREASED [None]
  - WHITE BLOOD CELL COUNT DECREASED [None]
